FAERS Safety Report 16864018 (Version 2)
Quarter: 2021Q1

REPORT INFORMATION
  Report Type: Spontaneous
  Country: US (occurrence: US)
  Receive Date: 20190927
  Receipt Date: 20210309
  Transmission Date: 20210419
  Serious: Yes (Other)
  Sender: FDA-Public Use
  Company Number: US-TEVA-2019-US-1115075

PATIENT
  Age: 71 Year
  Sex: Male

DRUGS (10)
  1. VALSARTAN/HYDROCHLORTHIAZIDE SOLCO HEALTHCARE [Suspect]
     Active Substance: HYDROCHLOROTHIAZIDE\VALSARTAN
     Dosage: 80/12.5 MG
     Route: 065
     Dates: start: 20180428, end: 20180727
  2. VIAGRA [Concomitant]
     Active Substance: SILDENAFIL CITRATE
     Route: 065
  3. VALSARTAN/HYDROCHLORTHIAZIDE MYLAN PHARMACEUTICALS [Suspect]
     Active Substance: HYDROCHLOROTHIAZIDE\VALSARTAN
     Dosage: 80/12.5 MG
     Route: 065
     Dates: start: 20140115, end: 20150214
  4. AMLODIPINE BESYLATE. [Concomitant]
     Active Substance: AMLODIPINE BESYLATE
     Route: 065
  5. VALSARTAN/HYDROCHLORTHIAZIDE AUROBINDO PHARMA [Suspect]
     Active Substance: HYDROCHLOROTHIAZIDE\VALSARTAN
     Dosage: 80 MG /12.5 MG
     Route: 065
     Dates: start: 20150213, end: 20160627
  6. TRAZODONE [Concomitant]
     Active Substance: TRAZODONE HYDROCHLORIDE
     Route: 065
  7. VALSARTAN/HYDROCHLORTHIAZIDE SOLCO HEALTHCARE [Suspect]
     Active Substance: HYDROCHLOROTHIAZIDE\VALSARTAN
     Route: 065
  8. VALSARTAN/HYDROCHLORTHIAZIDE MYLAN PHARMACEUTICALS [Suspect]
     Active Substance: HYDROCHLOROTHIAZIDE\VALSARTAN
     Dosage: 80/12.5 MG
     Route: 065
     Dates: start: 20121001, end: 20121105
  9. VALSARTAN/HYDROCHLORTHIAZIDE AUROBINDO PHARMA [Suspect]
     Active Substance: HYDROCHLOROTHIAZIDE\VALSARTAN
     Dosage: 80/12.5 MG
     Route: 065
     Dates: start: 20171030, end: 20180124
  10. VALSARTAN/HYDROCHLORTHIAZIDE AUROBINDO PHARMA [Suspect]
     Active Substance: HYDROCHLOROTHIAZIDE\VALSARTAN
     Route: 065
     Dates: start: 20180724, end: 20190122

REACTIONS (1)
  - Prostate cancer [Not Recovered/Not Resolved]
